FAERS Safety Report 25900338 (Version 1)
Quarter: 2025Q4

REPORT INFORMATION
  Report Type: Report from Study
  Country: US (occurrence: US)
  Receive Date: 20251009
  Receipt Date: 20251009
  Transmission Date: 20260118
  Serious: Yes (Other)
  Sender: BAYER HEALTHCARE PHARMACEUTICALS INC.
  Company Number: US-BAYER-2025A053555

PATIENT
  Age: 77 Year
  Sex: Female
  Weight: 74.376 kg

DRUGS (29)
  1. ADEMPAS [Suspect]
     Active Substance: RIOCIGUAT
     Indication: Pulmonary arterial hypertension
     Dosage: UNK
     Dates: start: 20250305
  2. ADEMPAS [Suspect]
     Active Substance: RIOCIGUAT
     Indication: Pulmonary arterial hypertension
     Dosage: 2 MG, TID
     Route: 048
  3. ADEMPAS [Suspect]
     Active Substance: RIOCIGUAT
     Indication: Pulmonary arterial hypertension
     Dosage: 2 MG, TID
     Route: 048
     Dates: start: 20250428
  4. ADEMPAS [Suspect]
     Active Substance: RIOCIGUAT
     Indication: Pulmonary arterial hypertension
     Dosage: 2.5 MG, TID
     Route: 048
  5. ADEMPAS [Suspect]
     Active Substance: RIOCIGUAT
     Indication: Pulmonary arterial hypertension
     Dosage: 2.5 MG, TID
     Route: 048
  6. FUROSEMIDE [Concomitant]
     Active Substance: FUROSEMIDE
  7. CARVEDILOL [Concomitant]
     Active Substance: CARVEDILOL
  8. ALBUTEROL\IPRATROPIUM [Concomitant]
     Active Substance: ALBUTEROL\IPRATROPIUM
  9. ACETAMINOPHEN [Concomitant]
     Active Substance: ACETAMINOPHEN
  10. SENNA S [Concomitant]
     Active Substance: DOCUSATE SODIUM\SENNOSIDES
  11. ADVAIR HFA [Concomitant]
     Active Substance: FLUTICASONE PROPIONATE\SALMETEROL XINAFOATE
  12. VITAMIN D3 [Concomitant]
     Active Substance: CHOLECALCIFEROL
  13. CULTURELLE [Concomitant]
     Active Substance: LACTOBACILLUS RHAMNOSUS
  14. PREMARIN [Concomitant]
     Active Substance: ESTROGENS, CONJUGATED
  15. PANTOPRAZOLE SODIUM [Concomitant]
     Active Substance: PANTOPRAZOLE SODIUM
  16. POTASSIUM CHLORIDE [Concomitant]
     Active Substance: POTASSIUM CHLORIDE
  17. ELIQUIS [Concomitant]
     Active Substance: APIXABAN
  18. GABAPENTIN [Concomitant]
     Active Substance: GABAPENTIN
  19. VITAMIN D2 [Concomitant]
     Active Substance: ERGOCALCIFEROL
  20. FELODIPINE [Concomitant]
     Active Substance: FELODIPINE
  21. LACTOBACILLUS ACIDOPHILUS [Concomitant]
     Active Substance: LACTOBACILLUS ACIDOPHILUS
  22. SPIRONOLACTONE [Concomitant]
     Active Substance: SPIRONOLACTONE
  23. OXYGEN [Concomitant]
     Active Substance: OXYGEN
  24. CETIRIZINE HCL [Concomitant]
     Active Substance: CETIRIZINE HYDROCHLORIDE
  25. DICYCLOMINE HYDROCHLORIDE [Concomitant]
     Active Substance: DICYCLOMINE HYDROCHLORIDE
  26. LEVOTHYROXINE SODIUM [Concomitant]
     Active Substance: LEVOTHYROXINE SODIUM
  27. ENTRESTO [Concomitant]
     Active Substance: SACUBITRIL\VALSARTAN
  28. MYRBETRIQ [Concomitant]
     Active Substance: MIRABEGRON
  29. MINERALS\VITAMINS [Concomitant]
     Active Substance: MINERALS\VITAMINS

REACTIONS (17)
  - Head injury [None]
  - Limb injury [Not Recovered/Not Resolved]
  - Fall [None]
  - Drug intolerance [None]
  - Gastrooesophageal reflux disease [None]
  - Dyspepsia [Recovering/Resolving]
  - Dizziness [None]
  - Cough [None]
  - Feeling abnormal [None]
  - Joint swelling [None]
  - Muscular weakness [Not Recovered/Not Resolved]
  - Dysstasia [None]
  - Incontinence [None]
  - Dyspepsia [Not Recovered/Not Resolved]
  - Scoliosis [None]
  - Diarrhoea [None]
  - Joint swelling [None]

NARRATIVE: CASE EVENT DATE: 20241101
